FAERS Safety Report 5563460-9 (Version None)
Quarter: 2007Q4

REPORT INFORMATION
  Report Type: 
  Country: None (occurrence: None)
  Receive Date: 20071217
  Receipt Date: 20071003
  Transmission Date: 20080405
  Serious: No
  Sender: FDA-Public Use
  Company Number: US-ASTRAZENECA-2007UW11239

PATIENT
  Age: 69 Year
  Sex: Female
  Weight: 61.7 kg

DRUGS (5)
  1. CRESTOR [Suspect]
     Indication: BLOOD CHOLESTEROL INCREASED
     Route: 048
     Dates: start: 20070401, end: 20070801
  2. CRESTOR [Suspect]
     Route: 048
     Dates: start: 20070801
  3. LISINOPRIL [Concomitant]
  4. ASPIRIN [Concomitant]
  5. MV [Concomitant]

REACTIONS (3)
  - ENERGY INCREASED [None]
  - FATIGUE [None]
  - ILL-DEFINED DISORDER [None]
